FAERS Safety Report 16662249 (Version 1)
Quarter: 2019Q3

REPORT INFORMATION
  Report Type: Spontaneous
  Country: US (occurrence: US)
  Receive Date: 20190802
  Receipt Date: 20190802
  Transmission Date: 20191004
  Serious: No
  Sender: FDA-Public Use
  Company Number: None

PATIENT
  Sex: Male

DRUGS (2)
  1. DIFFERIN [Suspect]
     Active Substance: ADAPALENE
  2. CLINDAMYCIN PHOSPHATE SWAB [Suspect]
     Active Substance: CLINDAMYCIN PHOSPHATE

REACTIONS (1)
  - Drug ineffective [None]
